FAERS Safety Report 9397982 (Version 1)
Quarter: 2013Q3

REPORT INFORMATION
  Report Type: Spontaneous
  Country: GB (occurrence: GB)
  Receive Date: 20130712
  Receipt Date: 20130712
  Transmission Date: 20140515
  Serious: Yes (Other)
  Sender: FDA-Public Use
  Company Number: PHHY2013GB071432

PATIENT
  Sex: Female

DRUGS (2)
  1. GLICLAZIDE [Suspect]
     Dosage: 80 MG
     Route: 065
     Dates: start: 201305
  2. METFORMIN [Suspect]
     Dosage: 500 MG
     Route: 065
     Dates: start: 201305

REACTIONS (4)
  - Deafness unilateral [Unknown]
  - Musculoskeletal pain [Unknown]
  - Sleep disorder [Unknown]
  - Paraesthesia [Unknown]
